FAERS Safety Report 16777609 (Version 2)
Quarter: 2019Q3

REPORT INFORMATION
  Report Type: Report from Study
  Country: AU (occurrence: AU)
  Receive Date: 20190905
  Receipt Date: 20190930
  Transmission Date: 20191005
  Serious: Yes (Hospitalization)
  Sender: FDA-Public Use
  Company Number: AU-PFIZER INC-2019368572

PATIENT
  Age: 26 Year
  Sex: Female
  Weight: 54.2 kg

DRUGS (3)
  1. DAUNORUBICIN [Suspect]
     Active Substance: DAUNORUBICIN
     Indication: ACUTE MYELOID LEUKAEMIA
     Dosage: 96 MG, DAILY BY CONTINUOUS INFUSION
     Route: 041
     Dates: start: 20190703, end: 20190705
  2. GLASDEGIB [Suspect]
     Active Substance: GLASDEGIB
     Indication: ACUTE MYELOID LEUKAEMIA
     Dosage: ONCE DAILY CONTINUOUS
     Route: 048
     Dates: start: 20190703
  3. CYTARABINE. [Suspect]
     Active Substance: CYTARABINE
     Indication: ACUTE MYELOID LEUKAEMIA
     Dosage: 4.65 G, OVER 3 HOURS TWICE DAILY ON DAYS 1, 3, 5
     Route: 042
     Dates: start: 20190813, end: 20190818

REACTIONS (1)
  - Enterococcal infection [Recovered/Resolved]

NARRATIVE: CASE EVENT DATE: 20190826
